FAERS Safety Report 11350849 (Version 1)
Quarter: 2015Q3

REPORT INFORMATION
  Report Type: Spontaneous
  Country: US (occurrence: US)
  Receive Date: 20150807
  Receipt Date: 20150807
  Transmission Date: 20151125
  Serious: No
  Sender: FDA-Public Use
  Company Number: US-JNJFOC-20150516820

PATIENT
  Age: 71 Year
  Sex: Male
  Weight: 97.52 kg

DRUGS (5)
  1. VISINE A [Suspect]
     Active Substance: NAPHAZOLINE HYDROCHLORIDE\PHENIRAMINE MALEATE
     Indication: OCULAR HYPERAEMIA
     Dosage: 1 DROP EACH EYE
     Route: 047
  2. VISINE ADVANCED RELIEF [Suspect]
     Active Substance: DEXTRAN 70\POLYETHYLENE GLYCOL 400\POVIDONE\TETRAHYDROZOLINE HYDROCHLORIDE
     Indication: OCULAR HYPERAEMIA
     Dosage: 1 DROP EACH EYE
     Route: 047
  3. VISINE TOTALITY MULTI SYMPTOM RELIEF [Suspect]
     Active Substance: GLYCERIN\HYPROMELLOSES\POLYETHYLENE GLYCOL 400\TETRAHYDROZOLINE HYDROCHLORIDE\ZINC SULFATE
     Indication: OCULAR HYPERAEMIA
     Dosage: 1 DROP EACH EYE
     Route: 047
  4. VISINE A.C. [Suspect]
     Active Substance: TETRAHYDROZOLINE HYDROCHLORIDE\ZINC SULFATE
     Indication: OCULAR HYPERAEMIA
     Dosage: 1 DROP EACH EYE
     Route: 047
  5. VISINE MAXIMUM REDNESS RELIEF FORMULA [Suspect]
     Active Substance: GLYCERIN\HYPROMELLOSES\POLYETHYLENE GLYCOL 400\TETRAHYDROZOLINE HYDROCHLORIDE
     Indication: OCULAR HYPERAEMIA
     Dosage: 1 DROP EACH EYE
     Route: 047

REACTIONS (1)
  - Ocular hyperaemia [Recovered/Resolved]
